FAERS Safety Report 22226064 (Version 2)
Quarter: 2023Q2

REPORT INFORMATION
  Report Type: Spontaneous
  Country: US (occurrence: US)
  Receive Date: 20230419
  Receipt Date: 20230614
  Transmission Date: 20230722
  Serious: No
  Sender: FDA-Public Use
  Company Number: US-BIOGEN-2023BI01200071

PATIENT
  Sex: Male

DRUGS (1)
  1. TECFIDERA [Suspect]
     Active Substance: DIMETHYL FUMARATE
     Indication: Multiple sclerosis
     Route: 050

REACTIONS (6)
  - Product dose omission issue [Recovered/Resolved]
  - Abdominal discomfort [Unknown]
  - Asthenia [Unknown]
  - Blood cholesterol increased [Unknown]
  - Influenza [Unknown]
  - Flushing [Unknown]
